FAERS Safety Report 6870105-4 (Version None)
Quarter: 2010Q3

REPORT INFORMATION
  Report Type: 
  Country: None (occurrence: None)
  Receive Date: 20100722
  Receipt Date: 20100712
  Transmission Date: 20110219
  Serious: Yes (Life-Threatening, Hospitalization)
  Sender: FDA-Public Use
  Company Number: CA-PFIZER INC-2010029505

PATIENT
  Age: 82 Year
  Sex: Female
  Weight: 62.6 kg

DRUGS (8)
  1. BLINDED *NO SUBJECT DRUG [Suspect]
     Indication: METASTATIC CARCINOMA OF THE BLADDER
     Dosage: 50 MG, 1X/DAY
     Route: 048
     Dates: start: 20100217
  2. BLINDED *PLACEBO [Suspect]
     Indication: METASTATIC CARCINOMA OF THE BLADDER
     Dosage: 50 MG, 1X/DAY
     Route: 048
     Dates: start: 20100217
  3. SUNITINIB MALATE [Suspect]
     Indication: METASTATIC CARCINOMA OF THE BLADDER
     Dosage: 50 MG, 1X/DAY
     Route: 048
     Dates: start: 20100217
  4. ATENOLOL [Concomitant]
     Indication: HYPERTENSION
     Dosage: UNK
     Route: 048
  5. RAMIPRIL [Concomitant]
     Indication: HYPERTENSION
     Dosage: UNK
     Route: 048
  6. SYMBICORT [Concomitant]
     Indication: ASTHMA
     Dosage: UNK
     Route: 055
  7. VENTOLIN [Concomitant]
     Indication: ASTHMA
     Dosage: UNK
     Route: 055
  8. VITALUX [Concomitant]
     Indication: PROPHYLAXIS
     Dosage: UNK
     Route: 048

REACTIONS (5)
  - DEHYDRATION [None]
  - FATIGUE [None]
  - RENAL IMPAIRMENT [None]
  - THROMBOCYTOPENIA [None]
  - URINARY TRACT INFECTION [None]
